FAERS Safety Report 16550780 (Version 1)
Quarter: 2019Q3

REPORT INFORMATION
  Report Type: Spontaneous
  Country: US (occurrence: US)
  Receive Date: 20190709
  Receipt Date: 20190709
  Transmission Date: 20191004
  Serious: No
  Sender: FDA-Public Use
  Company Number: None

PATIENT
  Age: 60 Year
  Sex: Male
  Weight: 78.75 kg

DRUGS (7)
  1. HYZAAR [Concomitant]
     Active Substance: HYDROCHLOROTHIAZIDE\LOSARTAN POTASSIUM
  2. LIPITOR [Concomitant]
     Active Substance: ATORVASTATIN CALCIUM
  3. LAMICTAL [Concomitant]
     Active Substance: LAMOTRIGINE
  4. KLONOPIN [Concomitant]
     Active Substance: CLONAZEPAM
  5. TENORMIN [Concomitant]
     Active Substance: ATENOLOL
  6. TESTOSTERONE CYPIONATE. [Suspect]
     Active Substance: TESTOSTERONE CYPIONATE
     Indication: BLOOD TESTOSTERONE DECREASED
     Dosage: ?          QUANTITY:1 INJECTION(S);OTHER FREQUENCY:EVERY 7 DAYS;?
     Route: 030
  7. LANTANOPROST [Concomitant]
     Active Substance: LATANOPROST

REACTIONS (4)
  - Inappropriate schedule of product administration [None]
  - Incorrect dose administered [None]
  - Product packaging quantity issue [None]
  - Product preparation error [None]

NARRATIVE: CASE EVENT DATE: 20190529
